FAERS Safety Report 17337945 (Version 1)
Quarter: 2020Q1

REPORT INFORMATION
  Report Type: Spontaneous
  Country: US (occurrence: US)
  Receive Date: 20200129
  Receipt Date: 20200129
  Transmission Date: 20200409
  Serious: No
  Sender: FDA-Public Use
  Company Number: US-BEH-2020112007

PATIENT
  Sex: Female

DRUGS (1)
  1. HIZENTRA [Suspect]
     Active Substance: HUMAN IMMUNOGLOBULIN G
     Indication: HUMORAL IMMUNE DEFECT
     Dosage: 10 GRAM
     Route: 065
     Dates: start: 201710

REACTIONS (6)
  - Fatigue [Recovered/Resolved]
  - Administration site bruise [Recovered/Resolved]
  - Administration site rash [Recovered/Resolved]
  - Tenderness [Recovered/Resolved]
  - Cough [Recovered/Resolved]
  - Abdominal discomfort [Recovered/Resolved]
